FAERS Safety Report 19055319 (Version 2)
Quarter: 2021Q1

REPORT INFORMATION
  Report Type: Spontaneous
  Country: US (occurrence: US)
  Receive Date: 20210325
  Receipt Date: 20210331
  Transmission Date: 20210420
  Serious: No
  Sender: FDA-Public Use
  Company Number: US-ORGANON-O2103USA001126

PATIENT
  Age: 22 Year
  Sex: Female

DRUGS (2)
  1. NEXPLANON [Suspect]
     Active Substance: ETONOGESTREL
     Indication: CONTRACEPTION
     Dosage: 1 IMPLANT
     Route: 058
     Dates: start: 20210217
  2. NEXPLANON [Suspect]
     Active Substance: ETONOGESTREL
     Dosage: 1 IMPLANT, 68 MG

REACTIONS (3)
  - Occupational exposure to product [Unknown]
  - Injury associated with device [Unknown]
  - Product quality issue [Unknown]

NARRATIVE: CASE EVENT DATE: 20210217
